FAERS Safety Report 7286022-4 (Version None)
Quarter: 2011Q1

REPORT INFORMATION
  Report Type: 
  Country: None (occurrence: None)
  Receive Date: 20110210
  Receipt Date: 20110207
  Transmission Date: 20110831
  Serious: Yes (Other)
  Sender: FDA-Public Use
  Company Number: US-ABBOTT-11P-163-0703605-00

PATIENT
  Sex: Female
  Weight: 57.204 kg

DRUGS (13)
  1. HUMIRA [Suspect]
     Route: 058
     Dates: end: 20100201
  2. ADVIL [Concomitant]
     Indication: PRODUCT USED FOR UNKNOWN INDICATION
     Dosage: AS REQUIRED AT HOUR OF SLEEP
  3. ASCORBIC ACID [Concomitant]
     Indication: PRODUCT USED FOR UNKNOWN INDICATION
  4. PRENATAL VITAMINS [Concomitant]
     Indication: VITAMIN SUPPLEMENTATION
  5. HUMIRA [Suspect]
     Dosage: OFF MEDICATION FOR 1 MONTH FOR TOOTH EXTRACTION.
     Route: 058
     Dates: start: 20100301
  6. HYDROCODONE BITARTRATE [Concomitant]
     Indication: PAIN
  7. MULTI-VITAMIN [Concomitant]
     Indication: SLUGGISHNESS
  8. UNKNOWN MEDICATIONS [Concomitant]
     Indication: RHEUMATOID ARTHRITIS
     Dates: end: 20100101
  9. UNKNOWN ANTIBIOTIC [Suspect]
     Indication: TOOTH EXTRACTION
  10. FOLIC ACID [Concomitant]
     Indication: PRODUCT USED FOR UNKNOWN INDICATION
  11. HUMIRA [Suspect]
     Indication: RHEUMATOID ARTHRITIS
     Route: 058
     Dates: start: 20070101
  12. UNKNOWN ANTIBIOTIC [Suspect]
     Indication: PROPHYLAXIS
     Dates: start: 20100201, end: 20100201
  13. METHOTREXATE [Concomitant]
     Indication: RHEUMATOID ARTHRITIS

REACTIONS (7)
  - LOCAL SWELLING [None]
  - GINGIVAL SWELLING [None]
  - TOOTH FRACTURE [None]
  - ARTHROPATHY [None]
  - TOOTHACHE [None]
  - PAIN IN EXTREMITY [None]
  - PRURITUS [None]
